FAERS Safety Report 21590945 (Version 2)
Quarter: 2022Q4

REPORT INFORMATION
  Report Type: Report from Study
  Country: US (occurrence: None)
  Receive Date: 20221114
  Receipt Date: 20221202
  Transmission Date: 20230112
  Serious: Yes (Hospitalization)
  Sender: FDA-Public Use
  Company Number: US-Eisai Medical Research-EC-2022-127687

PATIENT
  Age: 60 Year
  Sex: Female

DRUGS (6)
  1. LENVIMA [Suspect]
     Active Substance: LENVATINIB
     Indication: Renal cancer
     Route: 048
     Dates: start: 20220401, end: 202211
  2. LENVIMA [Suspect]
     Active Substance: LENVATINIB
     Indication: Metastases to liver
     Route: 048
     Dates: start: 202211
  3. LENVIMA [Suspect]
     Active Substance: LENVATINIB
     Indication: Cholangiocarcinoma
  4. LENVIMA [Suspect]
     Active Substance: LENVATINIB
     Indication: Metastases to lymph nodes
  5. EVEROLIMUS [Concomitant]
     Active Substance: EVEROLIMUS
  6. NIFEDIPINE [Concomitant]
     Active Substance: NIFEDIPINE

REACTIONS (4)
  - Dehydration [Unknown]
  - Vomiting [Unknown]
  - Diarrhoea [Unknown]
  - Urinary tract infection [Unknown]

NARRATIVE: CASE EVENT DATE: 20221101
